FAERS Safety Report 18022726 (Version 1)
Quarter: 2020Q3

REPORT INFORMATION
  Report Type: Spontaneous
  Country: CA (occurrence: CA)
  Receive Date: 20200714
  Receipt Date: 20200714
  Transmission Date: 20201103
  Serious: Yes (Other)
  Sender: FDA-Public Use
  Company Number: CA-BAUSCH-BL-2020-019481

PATIENT

DRUGS (2)
  1. ATROPINE SULPHATE [Suspect]
     Active Substance: ATROPINE SULFATE
     Indication: POSTOPERATIVE CARE
     Route: 047
  2. DEXAMETHASONE. [Suspect]
     Active Substance: DEXAMETHASONE
     Indication: POSTOPERATIVE CARE
     Route: 047

REACTIONS (1)
  - Choroidal detachment [Unknown]
